FAERS Safety Report 9987136 (Version 1)
Quarter: 2014Q1

REPORT INFORMATION
  Report Type: Spontaneous
  Country: US (occurrence: US)
  Receive Date: 20140307
  Receipt Date: 20140307
  Transmission Date: 20141002
  Serious: No
  Sender: FDA-Public Use
  Company Number: US-ABBVIE-13P-163-1081906-00

PATIENT
  Age: 46 Year
  Sex: Male
  Weight: 83.99 kg

DRUGS (8)
  1. HUMIRA [Suspect]
     Indication: PSORIASIS
     Dates: start: 201301
  2. FISH OIL [Concomitant]
     Indication: PRODUCT USED FOR UNKNOWN INDICATION
  3. MULTIVITAMIN [Concomitant]
     Indication: PRODUCT USED FOR UNKNOWN INDICATION
  4. FLAX SEED OIL [Concomitant]
     Indication: PRODUCT USED FOR UNKNOWN INDICATION
  5. LYSINE [Concomitant]
     Indication: PRODUCT USED FOR UNKNOWN INDICATION
  6. TURMERIC [Concomitant]
     Indication: PRODUCT USED FOR UNKNOWN INDICATION
  7. CLOBETASOL [Concomitant]
     Indication: PRODUCT USED FOR UNKNOWN INDICATION
  8. DOVONEX [Concomitant]
     Indication: PRODUCT USED FOR UNKNOWN INDICATION

REACTIONS (3)
  - Monocyte count increased [Unknown]
  - Alanine aminotransferase increased [Not Recovered/Not Resolved]
  - Aspartate aminotransferase increased [Not Recovered/Not Resolved]
